FAERS Safety Report 19855766 (Version 1)
Quarter: 2021Q3

REPORT INFORMATION
  Report Type: Spontaneous
  Country: US (occurrence: US)
  Receive Date: 20210920
  Receipt Date: 20210920
  Transmission Date: 20211014
  Serious: No
  Sender: FDA-Public Use
  Company Number: US-ORGANON-O2109USA001026

PATIENT
  Sex: Female

DRUGS (1)
  1. COZAAR [Suspect]
     Active Substance: LOSARTAN POTASSIUM
     Dosage: 75 MILLIGRAM, QD
     Route: 048
     Dates: start: 20210331

REACTIONS (6)
  - Wrong technique in product usage process [Unknown]
  - Mobility decreased [Unknown]
  - Back pain [Unknown]
  - Peripheral swelling [Unknown]
  - Muscular weakness [Unknown]
  - Dysstasia [Unknown]

NARRATIVE: CASE EVENT DATE: 20210331
